FAERS Safety Report 14212722 (Version 2)
Quarter: 2018Q1

REPORT INFORMATION
  Report Type: Spontaneous
  Country: US (occurrence: US)
  Receive Date: 20171122
  Receipt Date: 20180216
  Transmission Date: 20180508
  Serious: Yes (Other)
  Sender: FDA-Public Use
  Company Number: US-PFIZER INC-2017498838

PATIENT
  Age: 53 Year
  Sex: Male
  Weight: 79 kg

DRUGS (29)
  1. DIAZEPAM. [Concomitant]
     Active Substance: DIAZEPAM
     Indication: SLEEP DISORDER
  2. VARDENAFIL [Concomitant]
     Active Substance: VARDENAFIL
     Dosage: UNK
  3. VITAMIN D3 [Concomitant]
     Active Substance: CHOLECALCIFEROL
     Dosage: UNK
  4. LIDOCAIN /00033401/ [Concomitant]
     Active Substance: LIDOCAINE
     Indication: INTERVERTEBRAL DISC PROTRUSION
  5. LIDOCAIN /00033401/ [Concomitant]
     Active Substance: LIDOCAINE
     Indication: BACK PAIN
  6. ATORVASTATIN [Concomitant]
     Active Substance: ATORVASTATIN
     Indication: BLOOD CHOLESTEROL ABNORMAL
     Dosage: 40 MG, 1X/DAY
     Dates: start: 2005
  7. CYCLOBENZAPRINE. [Concomitant]
     Active Substance: CYCLOBENZAPRINE
     Indication: MUSCLE RELAXANT THERAPY
     Dosage: 5MG TWICE A DAY AS NEEDED
     Dates: start: 2011
  8. DIAZEPAM. [Concomitant]
     Active Substance: DIAZEPAM
     Indication: MUSCLE RELAXANT THERAPY
     Dosage: 10 MG, AS NEEDED
     Dates: start: 2013
  9. CIMETIDINE [Concomitant]
     Active Substance: CIMETIDINE
     Indication: GASTROOESOPHAGEAL REFLUX DISEASE
     Dosage: UNK
     Dates: start: 2017
  10. PROCTOFOAM /00622802/ [Concomitant]
     Dosage: UNK
     Dates: start: 2017
  11. LIDOCAIN /00033401/ [Concomitant]
     Active Substance: LIDOCAINE
     Indication: INTERVERTEBRAL DISC PROTRUSION
  12. VERAPAMIL [Concomitant]
     Active Substance: VERAPAMIL HYDROCHLORIDE
     Indication: BLOOD PRESSURE ABNORMAL
     Dosage: 360 MG, DAILY
     Dates: start: 2004
  13. MONTELUKAST [Concomitant]
     Active Substance: MONTELUKAST SODIUM
     Indication: GASTROOESOPHAGEAL REFLUX DISEASE
  14. AZELASTINE. [Concomitant]
     Active Substance: AZELASTINE HYDROCHLORIDE
     Indication: SLEEP APNOEA SYNDROME
     Dosage: 274 UG, 1X/DAY (137 MCG/SPRAY EACH NOSTRIL AT NIGHT)
     Route: 045
     Dates: start: 2007
  15. ARTIFICIAL TEARS /00222401/ [Concomitant]
     Active Substance: PROPYLENE GLYCOL
     Indication: RETINAL INJURY
     Dosage: UNK
  16. LIDOCAIN /00033401/ [Concomitant]
     Active Substance: LIDOCAINE
     Indication: INTERVERTEBRAL DISC OPERATION
     Dosage: UNK
  17. LIDOCAIN /00033401/ [Concomitant]
     Active Substance: LIDOCAINE
     Indication: INTERVERTEBRAL DISC OPERATION
     Dosage: UNK
  18. GABAPENTIN. [Suspect]
     Active Substance: GABAPENTIN
     Indication: BACK PAIN
     Dosage: UNK
     Dates: start: 2016
  19. LEVOTHYROXINE. [Concomitant]
     Active Substance: LEVOTHYROXINE
     Indication: THYROID DISORDER
     Dosage: 100 MG, 1X/DAY
     Dates: start: 2012
  20. CETIRIZINE [Concomitant]
     Active Substance: CETIRIZINE HYDROCHLORIDE
     Indication: HYPERSENSITIVITY
     Dosage: 10 MG, DAILY
     Dates: start: 2012
  21. MONTELUKAST [Concomitant]
     Active Substance: MONTELUKAST SODIUM
     Indication: DYSPNOEA
     Dosage: 10 MG, 1X/DAY
     Dates: start: 2007
  22. VIAGRA [Concomitant]
     Active Substance: SILDENAFIL CITRATE
     Dosage: 0.25 DF, UNK
  23. MELOXICAM. [Concomitant]
     Active Substance: MELOXICAM
     Indication: NECK PAIN
  24. LIDOCAIN /00033401/ [Concomitant]
     Active Substance: LIDOCAINE
     Indication: BACK PAIN
  25. GABAPENTIN. [Suspect]
     Active Substance: GABAPENTIN
     Indication: NECK PAIN
     Dosage: UNK
     Dates: start: 2014
  26. ATENOLOL. [Concomitant]
     Active Substance: ATENOLOL
     Indication: ARRHYTHMIA
     Dosage: 25 MG, 1X/DAY
     Dates: start: 2004
  27. VIAGRA [Concomitant]
     Active Substance: SILDENAFIL CITRATE
     Dosage: UNK
  28. MELOXICAM. [Concomitant]
     Active Substance: MELOXICAM
     Indication: BACK PAIN
     Dosage: 15 MG, 1X/DAY
     Dates: start: 2017
  29. DOCQLACE [Concomitant]
     Active Substance: DOCUSATE SODIUM
     Indication: FAECES HARD
     Dosage: UNK
     Dates: start: 2017

REACTIONS (9)
  - Hypersensitivity [Unknown]
  - Neuropathy peripheral [Unknown]
  - Acne [Unknown]
  - Product use in unapproved indication [Unknown]
  - Heart valve incompetence [Not Recovered/Not Resolved]
  - Insomnia [Not Recovered/Not Resolved]
  - Fatigue [Not Recovered/Not Resolved]
  - Folliculitis [Unknown]
  - Motor dysfunction [Not Recovered/Not Resolved]

NARRATIVE: CASE EVENT DATE: 201601
